FAERS Safety Report 7535572-1 (Version None)
Quarter: 2011Q2

REPORT INFORMATION
  Report Type: 
  Country: None (occurrence: None)
  Receive Date: 20110609
  Receipt Date: 20110530
  Transmission Date: 20111010
  Serious: Yes (Other)
  Sender: FDA-Public Use
  Company Number: CA-BAYER-2011-037624

PATIENT
  Age: 50 Year
  Sex: Female

DRUGS (1)
  1. MIRENA [Suspect]
     Indication: CONTRACEPTION
     Dosage: UNK
     Route: 015
     Dates: start: 20100701

REACTIONS (8)
  - HYPERSENSITIVITY [None]
  - DYSPHAGIA [None]
  - DYSPNOEA [None]
  - WEIGHT DECREASED [None]
  - RASH [None]
  - PRURITUS [None]
  - CHEST X-RAY ABNORMAL [None]
  - ORAL DISORDER [None]
